FAERS Safety Report 8777911 (Version 1)
Quarter: 2012Q4

REPORT INFORMATION
  Report Type: 
  Country: TW (occurrence: TW)
  Receive Date: 20120912
  Receipt Date: 20120912
  Transmission Date: 20130627
  Serious: Yes (Death, Life-Threatening, Hospitalization, Other)
  Sender: FDA-Public Use
  Company Number: TW-ROXANE LABORATORIES, INC.-2012-RO-01816RO

PATIENT
  Age: 34 Year
  Sex: Female

DRUGS (4)
  1. LITHIUM CARBONATE [Suspect]
     Indication: BIPOLAR DISORDER
  2. HALOPERIDOL [Suspect]
     Indication: POLYDIPSIA
     Dosage: 20 mg
  3. CHLORPROMAZINE [Suspect]
     Indication: POLYDIPSIA
     Dosage: 100 mg
  4. TRIHEXYPHENIDYL [Suspect]
     Indication: POLYDIPSIA
     Dosage: 4 mg

REACTIONS (11)
  - Hypotension [Fatal]
  - Neuroleptic malignant syndrome [Unknown]
  - Hyperglycaemic hyperosmolar nonketotic syndrome [Unknown]
  - Coma [Unknown]
  - Rhabdomyolysis [Unknown]
  - Blood creatine phosphokinase increased [Unknown]
  - Renal impairment [Unknown]
  - Dehydration [Unknown]
  - Polyuria [Unknown]
  - Nocturia [Unknown]
  - Polydipsia [Unknown]
